FAERS Safety Report 12202245 (Version 1)
Quarter: 2016Q1

REPORT INFORMATION
  Report Type: Spontaneous
  Country: AT (occurrence: AT)
  Receive Date: 20160322
  Receipt Date: 20160322
  Transmission Date: 20160526
  Serious: Yes (Other)
  Sender: FDA-Public Use
  Company Number: PHHY2016AT036041

PATIENT
  Age: 53 Year
  Sex: Male

DRUGS (6)
  1. SUTENT [Suspect]
     Active Substance: SUNITINIB MALATE
     Indication: METASTASES TO LIVER
  2. SANDOSTATIN LAR DEPOT [Suspect]
     Active Substance: OCTREOTIDE ACETATE
     Indication: METASTASES TO LIVER
     Dosage: 20 MG, UNK
     Route: 065
     Dates: start: 2005
  3. SANDOSTATIN LAR DEPOT [Suspect]
     Active Substance: OCTREOTIDE ACETATE
     Dosage: 30 MG, UNK
     Route: 065
     Dates: start: 2011
  4. AFINITOR [Suspect]
     Active Substance: EVEROLIMUS
     Indication: METASTASES TO LIVER
     Dosage: 10 MG, UNK
     Route: 065
  5. SANDOSTATIN LAR DEPOT [Suspect]
     Active Substance: OCTREOTIDE ACETATE
     Dosage: 40 MG, UNK
     Route: 065
  6. SUTENT [Suspect]
     Active Substance: SUNITINIB MALATE
     Indication: NEUROENDOCRINE TUMOUR
     Dosage: 50 MG, UNK
     Route: 065
     Dates: start: 2013

REACTIONS (5)
  - Metastases to lymph nodes [Unknown]
  - Peritoneal lesion [Unknown]
  - Metastases to liver [Unknown]
  - Bone lesion [Unknown]
  - Malignant neoplasm progression [Unknown]

NARRATIVE: CASE EVENT DATE: 2008
